FAERS Safety Report 9120086 (Version 1)
Quarter: 2013Q1

REPORT INFORMATION
  Report Type: Spontaneous
  Country: FR (occurrence: FR)
  Receive Date: 20130226
  Receipt Date: 20130226
  Transmission Date: 20140127
  Serious: Yes (Hospitalization)
  Sender: FDA-Public Use
  Company Number: FR-SANOFI-AVENTIS-2013SA016434

PATIENT
  Age: 57 Year
  Sex: Male

DRUGS (10)
  1. PLAVIX [Suspect]
     Indication: CEREBROVASCULAR ACCIDENT
     Route: 048
     Dates: start: 201207, end: 201208
  2. SINTROM [Suspect]
     Indication: DEEP VEIN THROMBOSIS
     Route: 048
     Dates: start: 20120718, end: 20120804
  3. AMLOR [Concomitant]
     Route: 048
  4. FLUDEX - SLOW RELEASE [Concomitant]
     Route: 048
  5. TAHOR [Concomitant]
     Route: 048
  6. TINZAPARIN SODIUM [Concomitant]
     Route: 058
     Dates: start: 201207, end: 201207
  7. DUOPLAVIN [Concomitant]
     Route: 048
     Dates: end: 201207
  8. DUOPLAVIN [Concomitant]
     Route: 048
     Dates: start: 20120816
  9. INEXIUM [Concomitant]
  10. DOLIPRANE [Concomitant]

REACTIONS (5)
  - International normalised ratio increased [Recovered/Resolved]
  - Asthenia [Recovered/Resolved]
  - Muscle haemorrhage [Recovered/Resolved]
  - Melaena [Recovered/Resolved]
  - Anaemia [Recovered/Resolved]
